FAERS Safety Report 21833137 (Version 3)
Quarter: 2023Q2

REPORT INFORMATION
  Report Type: Spontaneous
  Country: US (occurrence: US)
  Receive Date: 20230106
  Receipt Date: 20230425
  Transmission Date: 20230722
  Serious: No
  Sender: FDA-Public Use
  Company Number: US-ALLERGAN-2242027US

PATIENT
  Sex: Female

DRUGS (1)
  1. QULIPTA [Suspect]
     Active Substance: ATOGEPANT
     Indication: Product used for unknown indication
     Dates: start: 20221129

REACTIONS (4)
  - Product use issue [Unknown]
  - Feeling abnormal [Unknown]
  - COVID-19 [Unknown]
  - Migraine [Unknown]

NARRATIVE: CASE EVENT DATE: 20220101
